FAERS Safety Report 23556576 (Version 3)
Quarter: 2025Q1

REPORT INFORMATION
  Report Type: Spontaneous
  Country: US (occurrence: US)
  Receive Date: 20240223
  Receipt Date: 20250123
  Transmission Date: 20250409
  Serious: No
  Sender: VIIV
  Company Number: US-VIIV HEALTHCARE LIMITED-US2024021142

PATIENT
  Sex: Female
  Weight: 79 kg

DRUGS (22)
  1. CABENUVA [Suspect]
     Active Substance: CABOTEGRAVIR\RILPIVIRINE
     Indication: HIV infection
     Dosage: UNK UNK, MO, CABOTEGRAVIR-RILPIVIRINE 400 MG- 600 MG/2 ML
     Route: 030
     Dates: start: 20240209
  2. CABENUVA [Suspect]
     Active Substance: CABOTEGRAVIR\RILPIVIRINE
     Dosage: UNK UNK, Q2M
     Route: 030
  3. CABENUVA [Suspect]
     Active Substance: CABOTEGRAVIR\RILPIVIRINE
  4. ACYCLOVIR [Suspect]
     Active Substance: ACYCLOVIR
     Indication: Herpes simplex
     Dosage: 400 MG, TID
     Route: 048
     Dates: start: 20240814, end: 20241003
  5. METRONIDAZOLE [Suspect]
     Active Substance: METRONIDAZOLE
     Indication: Product used for unknown indication
     Dosage: 500 MG, BID
     Route: 048
     Dates: start: 20240614, end: 20240621
  6. VITAMIN B6 [Suspect]
     Active Substance: PYRIDOXINE HYDROCHLORIDE
     Indication: Morning sickness
     Route: 048
     Dates: start: 20240405, end: 20240920
  7. METOCLOPRAMIDE [Suspect]
     Active Substance: METOCLOPRAMIDE
     Indication: Morning sickness
     Route: 048
     Dates: start: 20240405, end: 20240920
  8. DOXYLAMINE [Suspect]
     Active Substance: DOXYLAMINE
     Indication: Morning sickness
     Route: 048
     Dates: start: 20240405, end: 20240920
  9. MAGNESIUM OXIDE [Suspect]
     Active Substance: MAGNESIUM OXIDE
     Indication: Headache
     Route: 048
     Dates: start: 20240405, end: 20240920
  10. BENZONATATE [Suspect]
     Active Substance: BENZONATATE
     Indication: Upper respiratory tract infection
     Dosage: 200 MG, TID
     Dates: start: 20241207
  11. ASPIRIN [Suspect]
     Active Substance: ASPIRIN
     Indication: High risk pregnancy
     Dosage: 2 DF, QD, 81 MG EC
     Route: 048
     Dates: start: 20240531
  12. CLOTRIMAZOLE [Suspect]
     Active Substance: CLOTRIMAZOLE
     Indication: Tinea infection
     Dates: start: 20240814, end: 20240920
  13. IRON [Suspect]
     Active Substance: IRON
     Indication: Vitamin supplementation
     Route: 048
     Dates: start: 20240206, end: 20240920
  14. DIETARY SUPPLEMENT [Suspect]
     Active Substance: DIETARY SUPPLEMENT
     Indication: Vitamin supplementation
     Route: 048
     Dates: start: 20240206, end: 20240920
  15. OMEGA-3-ACID ETHYL ESTERS [Suspect]
     Active Substance: OMEGA-3-ACID ETHYL ESTERS
     Indication: Vitamin supplementation
     Route: 048
     Dates: start: 20240206, end: 20240920
  16. FISH OIL [Suspect]
     Active Substance: FISH OIL
     Indication: Vitamin supplementation
     Route: 048
     Dates: start: 20240206, end: 20240920
  17. FAMOTIDINE [Suspect]
     Active Substance: FAMOTIDINE
     Indication: Oropharyngeal pain
     Route: 048
     Dates: start: 20231207
  18. FAMOTIDINE [Suspect]
     Active Substance: FAMOTIDINE
     Indication: Upper respiratory tract infection
  19. IPRATROPIUM [Suspect]
     Active Substance: IPRATROPIUM
     Indication: Upper respiratory tract infection
     Dosage: 2 PUFF(S), BID, 21 MCG MCG (0.03%)
     Dates: start: 20231207
  20. ALBUTEROL [Suspect]
     Active Substance: ALBUTEROL
     Indication: Wheezing
     Route: 055
     Dates: start: 20220315
  21. ALBUTEROL [Suspect]
     Active Substance: ALBUTEROL
     Indication: Dyspnoea
  22. ALBUTEROL [Suspect]
     Active Substance: ALBUTEROL
     Indication: Asthma

REACTIONS (2)
  - Exposure during pregnancy [Unknown]
  - Injection site pain [Recovered/Resolved]
